FAERS Safety Report 8379637-3 (Version None)
Quarter: 2012Q2

REPORT INFORMATION
  Report Type: 
  Country: None (occurrence: None)
  Receive Date: 20120523
  Receipt Date: 20120517
  Transmission Date: 20120825
  Serious: Yes (Hospitalization)
  Sender: FDA-Public Use
  Company Number: US-BAYER-2012-005347

PATIENT
  Age: 15 Year
  Sex: Female
  Weight: 81.633 kg

DRUGS (24)
  1. ZYRTEC [Concomitant]
     Dosage: UNK
     Route: 048
     Dates: start: 20090314
  2. MULTI-VITAMIN [Concomitant]
     Dosage: UNK
     Route: 048
     Dates: start: 20090314
  3. RETIN-A [Concomitant]
     Dosage: 0.025 % GEL
     Route: 061
     Dates: start: 20090314
  4. ADDERALL 5 [Concomitant]
     Dosage: UNK
     Dates: start: 20070101
  5. TENEX [Concomitant]
  6. MULTI-VITAMIN [Concomitant]
  7. WELLBUTRIN [Concomitant]
     Indication: DEPRESSION
     Dosage: UNK
     Dates: start: 20070101
  8. NAPROXEN (ALEVE) [Concomitant]
     Dosage: 400 MG, Q4HR
  9. ERYTHROMYCIN [Concomitant]
     Dosage: 333 MG, TID
     Route: 048
     Dates: start: 20090314
  10. KEFLEX [Concomitant]
     Indication: CELLULITIS
  11. LORTAB [Concomitant]
     Indication: PAIN
     Dosage: 5.0 MG, UNK
  12. TRETINOIN [Concomitant]
     Dosage: 0.025 UNK, UNK
     Route: 061
  13. DIPHENHYDRAMINE HCL [Concomitant]
     Dosage: 50MG 1 C PO Q HS(INTERPRETED AS 1 CAPSULE BY MOUTH AT BEDTIME)
     Route: 048
     Dates: start: 20090428
  14. ZOLOFT [Concomitant]
     Dosage: UNK
     Dates: start: 20070101
  15. BUSPAR [Concomitant]
  16. CLARITIN [Concomitant]
  17. DROSPIRENONE AND ETHINYL ESTRADIOL [Suspect]
     Dosage: UNK
     Dates: start: 20081101, end: 20090601
  18. ROCEPHIN [Concomitant]
     Dosage: 1 G, UNK
     Route: 030
  19. CONCERTA [Concomitant]
     Dosage: UNK
     Route: 048
     Dates: start: 20090314
  20. NSAID'S [Concomitant]
     Dosage: UNK
     Route: 048
     Dates: start: 20090531
  21. YASMIN [Suspect]
     Dosage: UNK
     Route: 048
     Dates: start: 20081101, end: 20090601
  22. YAZ [Suspect]
  23. ASPIRIN [Concomitant]
     Dosage: UNK
     Route: 048
     Dates: start: 20090414
  24. IBUPROFEN [Concomitant]
     Dosage: UNK
     Route: 048
     Dates: start: 20090414

REACTIONS (7)
  - DEEP VEIN THROMBOSIS [None]
  - EMOTIONAL DISTRESS [None]
  - PAIN [None]
  - ANXIETY [None]
  - INJURY [None]
  - GENERAL PHYSICAL HEALTH DETERIORATION [None]
  - MENTAL DISORDER [None]
